FAERS Safety Report 5453714-9 (Version None)
Quarter: 2007Q3

REPORT INFORMATION
  Report Type: 
  Country: None (occurrence: None)
  Receive Date: 20070917
  Receipt Date: 20070906
  Transmission Date: 20080115
  Serious: Yes (Hospitalization, Other)
  Sender: FDA-Public Use
  Company Number: US-JNJFOC-20070704703

PATIENT
  Sex: Female
  Weight: 70.76 kg

DRUGS (18)
  1. REMICADE [Suspect]
     Route: 042
  2. REMICADE [Suspect]
     Route: 042
  3. REMICADE [Suspect]
     Indication: RHEUMATOID ARTHRITIS
     Route: 042
  4. ACIPHEX [Concomitant]
     Indication: GASTROOESOPHAGEAL REFLUX DISEASE
     Route: 048
  5. LASIX [Concomitant]
     Indication: DIURETIC THERAPY
     Route: 048
  6. ARAVA [Concomitant]
     Indication: RHEUMATOID ARTHRITIS
  7. PREDNISONE [Concomitant]
  8. PREDNISONE [Concomitant]
     Dosage: 2-4 MG
  9. PREDNISONE [Concomitant]
     Indication: RHEUMATOID ARTHRITIS
     Dosage: 2-4 MG
  10. PREDNISONE [Concomitant]
     Indication: ANTIINFLAMMATORY THERAPY
  11. SALSALATE [Concomitant]
     Indication: ANTIINFLAMMATORY THERAPY
  12. PLAQUENIL [Concomitant]
  13. PLAQUENIL [Concomitant]
     Indication: RHEUMATOID ARTHRITIS
  14. PREMARIN [Concomitant]
     Indication: HORMONE REPLACEMENT THERAPY
     Route: 048
  15. ASPIRIN [Concomitant]
     Indication: CARDIOVASCULAR DISORDER
     Route: 048
  16. FORTEO [Concomitant]
     Indication: OSTEOPOROSIS
     Route: 048
  17. RESTASIS [Concomitant]
     Indication: DRY EYE
     Route: 047
  18. FUROSEMIDE [Concomitant]

REACTIONS (2)
  - CLOSTRIDIUM DIFFICILE TOXIN TEST POSITIVE [None]
  - DIVERTICULITIS [None]
